FAERS Safety Report 5016285-7 (Version None)
Quarter: 2006Q2

REPORT INFORMATION
  Report Type: 
  Country: None (occurrence: None)
  Receive Date: 20060414
  Receipt Date: 20060223
  Transmission Date: 20061013
  Serious: No
  Sender: FDA-Public Use
  Company Number: 2006SP000912

PATIENT
  Age: 62 Year
  Sex: Male
  Weight: 68.0396 kg

DRUGS (12)
  1. LUNESTA [Suspect]
     Indication: INSOMNIA
     Dosage: 3 MG; HS; ORAL; SEE IMAGE
     Route: 048
     Dates: start: 20050501, end: 20050601
  2. LUNESTA [Suspect]
     Indication: INSOMNIA
     Dosage: 3 MG; HS; ORAL; SEE IMAGE
     Route: 048
     Dates: start: 20050601, end: 20050901
  3. LUNESTA [Suspect]
     Indication: INSOMNIA
     Dosage: 3 MG; HS; ORAL; SEE IMAGE
     Route: 048
     Dates: start: 20050901, end: 20060218
  4. IMDUR [Concomitant]
  5. TENORMIN [Concomitant]
  6. PLAVIX [Concomitant]
  7. ARAVA [Concomitant]
  8. LEUKOVORIN DABUR [Concomitant]
  9. METHOTREXATE [Concomitant]
  10. CELEBREX [Concomitant]
  11. PREVACID [Concomitant]
  12. PAXIL [Concomitant]

REACTIONS (5)
  - AGGRESSION [None]
  - CONFUSIONAL STATE [None]
  - DYSGEUSIA [None]
  - MIDDLE INSOMNIA [None]
  - SUICIDAL IDEATION [None]
